FAERS Safety Report 8256466-2 (Version None)
Quarter: 2012Q2

REPORT INFORMATION
  Report Type: 
  Country: None (occurrence: None)
  Receive Date: 20120403
  Receipt Date: 20120402
  Transmission Date: 20120825
  Serious: Yes (Hospitalization)
  Sender: FDA-Public Use
  Company Number: AT-BAYER-201047848GPV

PATIENT
  Age: 69 Year
  Sex: Male
  Weight: 132 kg

DRUGS (14)
  1. SORAFENIB [Suspect]
     Route: 048
  2. NEURONTIN [Concomitant]
     Dosage: DAILY DOSE 300 MG
     Route: 065
     Dates: start: 20100208
  3. SORAFENIB [Suspect]
     Indication: HEPATIC NEOPLASM MALIGNANT
     Route: 048
     Dates: start: 20100316, end: 20100317
  4. NOVALGIN [Concomitant]
     Dosage: DAILY DOSE 60 GTT
     Route: 065
     Dates: start: 20100402
  5. CLOTRIMAZOLE [Concomitant]
     Route: 065
     Dates: start: 20100402
  6. LEGALON [Concomitant]
     Dosage: DAILY DOSE 70 MG
     Route: 065
     Dates: start: 20100208
  7. FUROSEMIDE [Concomitant]
     Dosage: 20/50 MG
     Route: 065
     Dates: start: 20100402
  8. CEFTRIAXON [Concomitant]
     Dosage: DAILY DOSE 6 G
     Route: 065
     Dates: start: 20100402, end: 20100409
  9. NEUROBION [CYANOCOBALAMIN,PYRIDOXINE HYDROCHLORIDE,THIAMINE DISULF [Concomitant]
     Dosage: DAILY DOSE 600 MG
     Route: 065
     Dates: start: 20100208
  10. PANTOPRAZOLE SODIUM [Concomitant]
     Dosage: DAILY DOSE 40 MG
     Route: 065
     Dates: start: 20100208
  11. UROSIN [Concomitant]
     Dosage: DAILY DOSE 300 MG
     Route: 065
     Dates: start: 20100208
  12. SYMBICORT [Concomitant]
     Dosage: DAILY DOSE 4 PUFF(S)
     Route: 065
     Dates: start: 20100208
  13. HEPA MERZ [ORNITHINE ASPARTATE] [Concomitant]
     Dosage: DAILY DOSE 9 G
     Route: 065
     Dates: start: 20100208
  14. LEVOFLOXACIN [Concomitant]
     Dosage: DAILY DOSE 500 MG
     Route: 065
     Dates: start: 20100409, end: 20100415

REACTIONS (2)
  - SKIN EROSION [None]
  - SKIN HAEMORRHAGE [None]
